FAERS Safety Report 10262343 (Version 1)
Quarter: 2014Q2

REPORT INFORMATION
  Report Type: Spontaneous
  Country: US (occurrence: US)
  Receive Date: 20140626
  Receipt Date: 20140626
  Transmission Date: 20141212
  Serious: Yes (Other)
  Sender: FDA-Public Use
  Company Number: US-JNJFOC-20140615610

PATIENT
  Age: 84 Year
  Sex: Female

DRUGS (10)
  1. XARELTO [Suspect]
     Indication: DEEP VEIN THROMBOSIS
     Route: 048
     Dates: start: 20131130
  2. TYLENOL [Suspect]
     Route: 065
  3. TYLENOL [Suspect]
     Indication: PRODUCT USED FOR UNKNOWN INDICATION
     Route: 065
     Dates: start: 201311
  4. PLAVIX [Concomitant]
     Indication: ATRIAL FIBRILLATION
     Route: 048
     Dates: start: 201312
  5. PROTONIX [Concomitant]
     Indication: GASTROINTESTINAL HAEMORRHAGE
     Route: 048
     Dates: start: 201311
  6. CELEXA [Concomitant]
     Route: 065
     Dates: start: 201311
  7. BUSPAR [Concomitant]
     Route: 065
     Dates: start: 201311
  8. METOPROLOL [Concomitant]
     Route: 065
     Dates: start: 201311
  9. HYDROCODONE [Concomitant]
     Route: 065
     Dates: start: 201311
  10. AMBIEN [Concomitant]
     Route: 065
     Dates: start: 201311

REACTIONS (2)
  - Fall [Recovered/Resolved]
  - Hip fracture [Recovered/Resolved]
